FAERS Safety Report 16761818 (Version 1)
Quarter: 2019Q3

REPORT INFORMATION
  Report Type: Report from Study
  Country: US (occurrence: US)
  Receive Date: 20190830
  Receipt Date: 20190830
  Transmission Date: 20191005
  Serious: Yes (Death, Hospitalization, Other)
  Sender: FDA-Public Use
  Company Number: US-CELGENEUS-163-21880-13053381

PATIENT
  Age: 50 Year
  Sex: Male
  Weight: 98.52 kg

DRUGS (2)
  1. DEXAMETHASONE. [Concomitant]
     Active Substance: DEXAMETHASONE
     Indication: PRODUCT USED FOR UNKNOWN INDICATION
     Dosage: 20 MILLIGRAM
     Route: 048
  2. REVLIMID [Suspect]
     Active Substance: LENALIDOMIDE
     Indication: PLASMA CELL MYELOMA
     Dosage: 25 MILLIGRAM
     Route: 048
     Dates: start: 20121228, end: 20130506

REACTIONS (3)
  - Plasma cell myeloma [Fatal]
  - Anaemia [Recovered/Resolved]
  - Plasmacytoma [Not Recovered/Not Resolved]

NARRATIVE: CASE EVENT DATE: 20130320
